FAERS Safety Report 5746478-2 (Version None)
Quarter: 2008Q2

REPORT INFORMATION
  Report Type: 
  Country: None (occurrence: None)
  Receive Date: 20080522
  Receipt Date: 20080516
  Transmission Date: 20081010
  Serious: Yes (Hospitalization, Other)
  Sender: FDA-Public Use
  Company Number: B0521511A

PATIENT
  Age: 31 Year
  Sex: Female

DRUGS (1)
  1. LAMOTRIGINE [Suspect]
     Indication: EPILEPSY
     Dosage: 2CAP PER DAY
     Route: 048
     Dates: start: 20071018, end: 20071101

REACTIONS (11)
  - CONJUNCTIVITIS [None]
  - ENTROPION [None]
  - EPILEPSY [None]
  - EYE IRRITATION [None]
  - EYE OEDEMA [None]
  - ILL-DEFINED DISORDER [None]
  - RASH MACULAR [None]
  - TOXIC EPIDERMAL NECROLYSIS [None]
  - TRICHIASIS [None]
  - VULVAL OEDEMA [None]
  - VULVOVAGINITIS [None]
